FAERS Safety Report 26203329 (Version 1)
Quarter: 2025Q4

REPORT INFORMATION
  Report Type: Spontaneous
  Country: EU (occurrence: EU)
  Receive Date: 20251226
  Receipt Date: 20251226
  Transmission Date: 20260118
  Serious: Yes (Other)
  Sender: JOHNSON AND JOHNSON
  Company Number: EU-JNJFOC-20251229589

PATIENT
  Age: 8 Year
  Sex: Male

DRUGS (1)
  1. DARATUMUMAB [Suspect]
     Active Substance: DARATUMUMAB
     Indication: Nephrotic syndrome
     Route: 042

REACTIONS (6)
  - Febrile neutropenia [Recovering/Resolving]
  - Oral herpes [Recovering/Resolving]
  - Herpes virus infection [Recovering/Resolving]
  - Anaemia [Unknown]
  - Off label use [Unknown]
  - Off label use [Unknown]
